FAERS Safety Report 6265176-2 (Version None)
Quarter: 2009Q3

REPORT INFORMATION
  Report Type: 
  Country: None (occurrence: None)
  Receive Date: 20090708
  Receipt Date: 20090630
  Transmission Date: 20100115
  Serious: Yes (Other)
  Sender: FDA-Public Use
  Company Number: GXKR2009GB07516

PATIENT
  Age: 32 Year
  Sex: Female

DRUGS (4)
  1. METRONIDAZOLE [Suspect]
     Indication: GINGIVAL ABSCESS
     Dosage: 400 MG, ORAL
     Route: 048
     Dates: start: 20090611, end: 20090611
  2. CODEINE SUL TAB [Concomitant]
  3. DICLOFENAC (DICLOFENAC) [Concomitant]
  4. PARACETAMOL (PARACETAMOL) [Concomitant]

REACTIONS (1)
  - ANAPHYLACTOID REACTION [None]
